FAERS Safety Report 5508996-1 (Version None)
Quarter: 2007Q4

REPORT INFORMATION
  Report Type: 
  Country: None (occurrence: None)
  Receive Date: 20071107
  Receipt Date: 20071026
  Transmission Date: 20080405
  Serious: Yes (Hospitalization)
  Sender: FDA-Public Use
  Company Number: DE-SANOFI-SYNTHELABO-A01200710269

PATIENT
  Sex: Male
  Weight: 116 kg

DRUGS (6)
  1. ZOCOR [Suspect]
     Indication: SUICIDE ATTEMPT
     Route: 048
     Dates: start: 20070910, end: 20070910
  2. TRAMADOL ABZ [Suspect]
     Indication: SUICIDE ATTEMPT
     Route: 048
     Dates: start: 20070910, end: 20070910
  3. OXAZEPAM [Suspect]
     Indication: SUICIDE ATTEMPT
     Route: 048
     Dates: start: 20070910, end: 20070910
  4. ACTOS [Suspect]
     Indication: SUICIDE ATTEMPT
     Route: 048
     Dates: start: 20070910, end: 20070910
  5. ISCOVER [Suspect]
     Indication: SUICIDE ATTEMPT
     Route: 048
     Dates: start: 20070910, end: 20070910
  6. BRANDY [Suspect]
     Indication: SUICIDE ATTEMPT
     Route: 048
     Dates: start: 20070910, end: 20070910

REACTIONS (2)
  - INTENTIONAL OVERDOSE [None]
  - SOMNOLENCE [None]
